FAERS Safety Report 8334988-3 (Version None)
Quarter: 2012Q2

REPORT INFORMATION
  Report Type: 
  Country: None (occurrence: None)
  Receive Date: 20120503
  Receipt Date: 20120426
  Transmission Date: 20120825
  Serious: Yes (Other)
  Sender: FDA-Public Use
  Company Number: US-TEVA-334710USA

PATIENT
  Sex: Female

DRUGS (9)
  1. TRAZODONE HCL [Suspect]
     Indication: MIGRAINE
  2. ALPRAZOLAM [Concomitant]
     Indication: MIGRAINE
  3. SERTRALINE HYDROCHLORIDE [Concomitant]
     Indication: DEPRESSION
     Dosage: 50 MILLIGRAM;
  4. SERTRALINE HYDROCHLORIDE [Concomitant]
     Indication: MIGRAINE
  5. NEFAZODONE HCL [Suspect]
     Indication: MIGRAINE
     Dates: start: 20000101
  6. ALPRAZOLAM [Concomitant]
     Indication: DEPRESSION
     Dosage: .75 MILLIGRAM;
  7. TRAZODONE HCL [Suspect]
     Indication: DEPRESSION
     Dosage: 200 MILLIGRAM; AT NIGHT
     Dates: start: 20120418, end: 20120421
  8. IMIPRAMINE HCL [Concomitant]
     Indication: DEPRESSION
     Dosage: 150 MILLIGRAM;
  9. IMIPRAMINE HCL [Concomitant]
     Indication: MIGRAINE

REACTIONS (13)
  - INSOMNIA [None]
  - DISTURBANCE IN ATTENTION [None]
  - PANIC ATTACK [None]
  - DISTRACTIBILITY [None]
  - VISUAL IMPAIRMENT [None]
  - MENTAL IMPAIRMENT [None]
  - ANXIETY [None]
  - DRUG INEFFECTIVE [None]
  - CONFUSIONAL STATE [None]
  - DRUG WITHDRAWAL SYNDROME [None]
  - NAUSEA [None]
  - EMOTIONAL DISORDER [None]
  - TEARFULNESS [None]
